FAERS Safety Report 16314862 (Version 1)
Quarter: 2019Q2

REPORT INFORMATION
  Report Type: Spontaneous
  Country: FR (occurrence: FR)
  Receive Date: 20190515
  Receipt Date: 20190515
  Transmission Date: 20190711
  Serious: Yes (Disabling)
  Sender: FDA-Public Use
  Company Number: FR-PFIZER INC-2019199913

PATIENT
  Sex: Female

DRUGS (2)
  1. XANAX [Suspect]
     Active Substance: ALPRAZOLAM
     Dosage: UNK
     Dates: start: 201811
  2. ENTYVIO [Suspect]
     Active Substance: VEDOLIZUMAB
     Indication: CROHN^S DISEASE
     Dosage: UNK
     Dates: start: 201811

REACTIONS (12)
  - Nausea [Unknown]
  - Fatigue [Unknown]
  - Hypokinesia [Recovered/Resolved]
  - Myositis [Unknown]
  - Asthenia [Unknown]
  - Paraesthesia [Unknown]
  - Pharyngeal inflammation [Unknown]
  - Eye inflammation [Unknown]
  - Arthralgia [Unknown]
  - Eye pain [Unknown]
  - Oropharyngeal pain [Unknown]
  - Toothache [Unknown]
